FAERS Safety Report 22623871 (Version 2)
Quarter: 2023Q4

REPORT INFORMATION
  Report Type: Report from Study
  Country: CA (occurrence: CA)
  Receive Date: 20230621
  Receipt Date: 20231031
  Transmission Date: 20240110
  Serious: Yes (Other)
  Sender: FDA-Public Use
  Company Number: CA-BIOGEN-2022BI01168941

PATIENT
  Age: 60 Year
  Sex: Male

DRUGS (7)
  1. TYSABRI [Suspect]
     Active Substance: NATALIZUMAB
     Indication: Multiple sclerosis
     Route: 050
     Dates: start: 20180129
  2. TYSABRI [Suspect]
     Active Substance: NATALIZUMAB
     Route: 050
     Dates: start: 20180129
  3. TYSABRI [Suspect]
     Active Substance: NATALIZUMAB
     Route: 050
     Dates: start: 20180129
  4. DALFAMPRIDINE [Suspect]
     Active Substance: DALFAMPRIDINE
     Indication: Multiple sclerosis
     Route: 050
     Dates: start: 20170111
  5. DALFAMPRIDINE [Suspect]
     Active Substance: DALFAMPRIDINE
     Route: 050
     Dates: start: 20170711, end: 20220627
  6. DALFAMPRIDINE [Suspect]
     Active Substance: DALFAMPRIDINE
     Route: 050
     Dates: start: 20170711
  7. METFORMIN [Suspect]
     Active Substance: METFORMIN HYDROCHLORIDE
     Indication: Product used for unknown indication
     Route: 050

REACTIONS (15)
  - Diabetes mellitus [Unknown]
  - COVID-19 [Not Recovered/Not Resolved]
  - Hallucination, visual [Unknown]
  - Skin discolouration [Unknown]
  - Diarrhoea [Recovered/Resolved]
  - Confusional state [Unknown]
  - Peripheral swelling [Unknown]
  - Asthenia [Unknown]
  - Balance disorder [Unknown]
  - Oropharyngeal pain [Unknown]
  - Constipation [Unknown]
  - Nausea [Unknown]
  - Cystitis [Not Recovered/Not Resolved]
  - Urinary tract infection [Recovered/Resolved]
  - Lethargy [Unknown]

NARRATIVE: CASE EVENT DATE: 20221108
